FAERS Safety Report 10906677 (Version 1)
Quarter: 2015Q1

REPORT INFORMATION
  Report Type: Spontaneous
  Country: US (occurrence: None)
  Receive Date: 20150309
  Receipt Date: 20150309
  Transmission Date: 20150721
  Serious: No
  Sender: FDA-Public Use
  Company Number: None

PATIENT
  Age: 55 Year
  Sex: Male
  Weight: 86.18 kg

DRUGS (1)
  1. LANSOPRAZOLE. [Suspect]
     Active Substance: LANSOPRAZOLE
     Indication: DRUG THERAPY
     Dosage: 90  QD  ORAL
     Route: 048
     Dates: start: 20150111, end: 20150305

REACTIONS (4)
  - Product quality issue [None]
  - Disease recurrence [None]
  - Drug ineffective [None]
  - Product lot number issue [None]

NARRATIVE: CASE EVENT DATE: 20150303
